FAERS Safety Report 6481074-3 (Version None)
Quarter: 2009Q4

REPORT INFORMATION
  Report Type: 
  Country: None (occurrence: None)
  Receive Date: 20091208
  Receipt Date: 20091130
  Transmission Date: 20100525
  Serious: Yes (Hospitalization)
  Sender: FDA-Public Use
  Company Number: ES-ABBOTT-09P-144-0609377-00

PATIENT
  Age: 49 Year
  Sex: Female

DRUGS (6)
  1. HUMIRA [Suspect]
     Indication: RHEUMATOID ARTHRITIS
     Route: 058
     Dates: start: 20060201
  2. METHOTREXATE [Concomitant]
     Indication: RHEUMATOID ARTHRITIS
  3. STEROIDS [Concomitant]
     Indication: RHEUMATOID ARTHRITIS
  4. AMOXICILLIN AND CLAVULANATE POTASSIUM [Concomitant]
     Indication: DRUG USE FOR UNKNOWN INDICATION
  5. LEVOFLOXACIN [Concomitant]
     Indication: DRUG USE FOR UNKNOWN INDICATION
  6. PREDNISONE [Concomitant]
     Indication: ERYTHEMA NODOSUM

REACTIONS (5)
  - COUGH [None]
  - ERYTHEMA NODOSUM [None]
  - HYPERHIDROSIS [None]
  - PYREXIA [None]
  - TUBERCULOSIS [None]
